FAERS Safety Report 14391388 (Version 1)
Quarter: 2018Q1

REPORT INFORMATION
  Report Type: Spontaneous
  Country: TR (occurrence: TR)
  Receive Date: 20180116
  Receipt Date: 20180116
  Transmission Date: 20180509
  Serious: Yes (Other)
  Sender: FDA-Public Use
  Company Number: TR-NOVOPROD-539661

PATIENT
  Age: 28 Year
  Sex: Female
  Weight: 67 kg

DRUGS (10)
  1. LEVEMIR [Suspect]
     Active Substance: INSULIN DETEMIR
     Indication: TYPE 1 DIABETES MELLITUS
     Dosage: UNK
     Route: 058
  2. JODID [Suspect]
     Active Substance: IODINE
     Indication: GOITRE
     Dosage: UNK
     Route: 048
  3. CORASPIN [Suspect]
     Active Substance: ASPIRIN
     Indication: THROMBOSIS PROPHYLAXIS
     Dosage: UNK
     Route: 048
  4. LEVEMIR [Suspect]
     Active Substance: INSULIN DETEMIR
     Dosage: UNK
     Route: 058
  5. DECAVIT                            /06014801/ [Suspect]
     Active Substance: VITAMINS
     Indication: VITAMIN SUPPLEMENTATION
     Dosage: UNK
     Route: 048
  6. NOVORAPID [Suspect]
     Active Substance: INSULIN ASPART
     Indication: TYPE 1 DIABETES MELLITUS
     Dosage: UNK
     Route: 058
  7. CLIMARA [Suspect]
     Active Substance: ESTRADIOL
     Indication: HORMONE REPLACEMENT THERAPY
     Dosage: UNK
     Route: 062
  8. CLEXANE [Concomitant]
     Active Substance: ENOXAPARIN SODIUM
     Indication: THROMBOSIS PROPHYLAXIS
     Dosage: UNK
  9. ESTROFEM                           /00045401/ [Concomitant]
     Active Substance: ESTRADIOL
     Indication: HORMONE REPLACEMENT THERAPY
     Dosage: UNK
     Route: 065
  10. NOVORAPID [Suspect]
     Active Substance: INSULIN ASPART
     Dosage: UNK
     Route: 058

REACTIONS (8)
  - Weight increased [Unknown]
  - Injection site haemorrhage [Not Recovered/Not Resolved]
  - Maternal exposure during pregnancy [None]
  - Drug ineffective [Recovered/Resolved]
  - Exposure during pregnancy [Unknown]
  - Abortion spontaneous [Recovered/Resolved]
  - Injection site pain [Not Recovered/Not Resolved]
  - Product quality issue [None]
